FAERS Safety Report 18360912 (Version 2)
Quarter: 2021Q2

REPORT INFORMATION
  Report Type: Report from Study
  Country: MX (occurrence: MX)
  Receive Date: 20201008
  Receipt Date: 20210415
  Transmission Date: 20210717
  Serious: Yes (Other)
  Sender: FDA-Public Use
  Company Number: NVSC2020MX269466

PATIENT
  Sex: Male
  Weight: 68 kg

DRUGS (1)
  1. ENTRESTO [Suspect]
     Active Substance: SACUBITRIL\VALSARTAN
     Indication: CARDIAC DISORDER
     Dosage: 1 DF, QD (CONC: 50 MG), STARTED 3 YEARS AGO
     Route: 048

REACTIONS (3)
  - Inappropriate schedule of product administration [Unknown]
  - Deafness [Unknown]
  - Product use in unapproved indication [Unknown]
